FAERS Safety Report 4451835-0 (Version None)
Quarter: 2004Q3

REPORT INFORMATION
  Report Type: 
  Country: None (occurrence: None)
  Receive Date: 20040915
  Receipt Date: 20040915
  Transmission Date: 20050211
  Serious: Yes (Hospitalization)
  Sender: FDA-Public Use
  Company Number: None

PATIENT
  Age: 53 Year
  Sex: Male
  Weight: 105 kg

DRUGS (4)
  1. LITHIUM 600 MG BID [Suspect]
     Indication: SCHIZOAFFECTIVE DISORDER
     Dosage: 600 MG BID PO
     Route: 048
     Dates: start: 19920101
  2. LISINOPRIL [Suspect]
     Indication: HYPERTENSION
     Dosage: 10 MG QD PO
     Route: 048
     Dates: start: 20040203, end: 20040301
  3. COGENTIN [Concomitant]
  4. TRIFLUPERAZONE [Concomitant]

REACTIONS (5)
  - DRUG TOXICITY [None]
  - DYSARTHRIA [None]
  - GAIT DISTURBANCE [None]
  - HYPERTENSION [None]
  - MENTAL STATUS CHANGES [None]
